FAERS Safety Report 5897882-3 (Version None)
Quarter: 2008Q3

REPORT INFORMATION
  Report Type: 
  Country: None (occurrence: None)
  Receive Date: 20080924
  Receipt Date: 20080924
  Transmission Date: 20090109
  Serious: Yes (Hospitalization)
  Sender: FDA-Public Use
  Company Number: None

PATIENT
  Sex: Female

DRUGS (9)
  1. ADRIAMYCIN PFS [Suspect]
     Indication: HEAD AND NECK CANCER
     Dosage: 20 MG/M2 1 WKLY X 2, OFF IV
     Route: 042
     Dates: start: 20080401, end: 20080910
  2. VELCADE [Suspect]
     Indication: HEAD AND NECK CANCER
     Dosage: 1.0 MG/M2 2X WKLY, OFF IV
     Route: 042
     Dates: start: 20080401, end: 20080910
  3. ZYPREXA [Concomitant]
  4. KLONOPIN [Concomitant]
  5. NEURONTIN [Concomitant]
  6. ATIVAN [Concomitant]
  7. DILAUDID [Concomitant]
  8. EFFEXSOR XR [Concomitant]
  9. FENTANYL TRANSDERMAL SYSTEM [Concomitant]

REACTIONS (1)
  - ABDOMINAL PAIN [None]
